FAERS Safety Report 16528131 (Version 2)
Quarter: 2019Q3

REPORT INFORMATION
  Report Type: Spontaneous
  Country: BE (occurrence: BE)
  Receive Date: 20190704
  Receipt Date: 20190718
  Transmission Date: 20191004
  Serious: Yes (Congenital Anomaly, Other)
  Sender: FDA-Public Use
  Company Number: BE-UCBSA-2019027600

PATIENT

DRUGS (1)
  1. CIMZIA [Suspect]
     Active Substance: CERTOLIZUMAB PEGOL
     Indication: OLIGOARTHRITIS
     Dosage: UNK
     Route: 064

REACTIONS (2)
  - Trisomy 21 [Unknown]
  - Maternal exposure during pregnancy [Unknown]
